FAERS Safety Report 8804782 (Version 1)
Quarter: 2012Q4

REPORT INFORMATION
  Report Type: 
  Country: US (occurrence: US)
  Receive Date: 20120924
  Receipt Date: 20120924
  Transmission Date: 20130627
  Serious: No
  Sender: FDA-Public Use
  Company Number: US-ALLERGAN-1112768US

PATIENT
  Age: 16 Year
  Sex: Male

DRUGS (1)
  1. AZELEX� [Suspect]
     Indication: ACNE
     Dosage: 1 application
     Route: 061
     Dates: start: 20110925, end: 20110926

REACTIONS (2)
  - Erythema [Not Recovered/Not Resolved]
  - Skin irritation [Unknown]
